FAERS Safety Report 9995526 (Version 1)
Quarter: 2014Q1

REPORT INFORMATION
  Report Type: Spontaneous
  Country: US (occurrence: None)
  Receive Date: 20140306
  Receipt Date: 20140306
  Transmission Date: 20141002
  Serious: Yes (Hospitalization)
  Sender: FDA-Public Use
  Company Number: IMP_07487_2014

PATIENT
  Age: 17 Year
  Sex: Male

DRUGS (3)
  1. BUPROPION [Suspect]
     Indication: PRODUCT USED FOR UNKNOWN INDICATION
     Dosage: (DF [NOT THE PRESCRIBED AMOUNT])
  2. CITALOPRAM [Suspect]
     Indication: PRODUCT USED FOR UNKNOWN INDICATION
     Dosage: (DF [NOT THE PRESCRIBED AMOUNT])
  3. IBUPROFEN [Suspect]
     Indication: PRODUCT USED FOR UNKNOWN INDICATION
     Dosage: (DF [NOT THE PRESCRIBED AMOUNT])

REACTIONS (3)
  - Convulsion [None]
  - Hallucination, auditory [None]
  - Drug abuse [None]
